FAERS Safety Report 23974455 (Version 1)
Quarter: 2024Q2

REPORT INFORMATION
  Report Type: Report from Study
  Country: US (occurrence: US)
  Receive Date: 20240614
  Receipt Date: 20240614
  Transmission Date: 20240715
  Serious: Yes (Other)
  Sender: FDA-Public Use
  Company Number: US-Merck Healthcare KGaA-2024030879

PATIENT
  Age: 50 Year
  Sex: Male

DRUGS (1)
  1. SEROSTIM [Suspect]
     Active Substance: SOMATROPIN
     Indication: Cerebral palsy
     Route: 058

REACTIONS (5)
  - Cerebral palsy [Unknown]
  - Condition aggravated [Unknown]
  - Nausea [Unknown]
  - Illness [Unknown]
  - Off label use [Unknown]
